FAERS Safety Report 8780489 (Version 2)
Quarter: 2013Q1

REPORT INFORMATION
  Report Type: Spontaneous
  Country: FR (occurrence: None)
  Receive Date: 20120828
  Receipt Date: 20121217
  Transmission Date: 20140127
  Serious: Yes (Hospitalization)
  Sender: FDA-Public Use
  Company Number: DSJ-2012-14878

PATIENT
  Age: 54 Year
  Sex: Female

DRUGS (5)
  1. OFLOXACIN [Suspect]
     Indication: MASTOIDITIS
     Dosage: AURICULAR (OTIC)
     Dates: start: 20120619
  2. FLAGYL [Suspect]
     Indication: MASTOIDITIS
     Dosage: (500 MG, 3 IN 1 D)
     Route: 048
     Dates: start: 20120619, end: 20120726
  3. ROCEPHINE [Suspect]
     Indication: MASTOIDITIS
     Dosage: UNKNOWN, INTRAMUSCULAR
     Dates: start: 20120619
  4. ANALGESICS (ANALGESICS) [Concomitant]
  5. PREVISCAN (PENTOXIFYLLINE)(PENTOXIFYLLINE) [Concomitant]

REACTIONS (2)
  - Paraesthesia [None]
  - Dysaesthesia [None]
